FAERS Safety Report 9003806 (Version 1)
Quarter: 2013Q1

REPORT INFORMATION
  Report Type: Spontaneous
  Country: US (occurrence: US)
  Receive Date: 20130108
  Receipt Date: 20130108
  Transmission Date: 20140127
  Serious: No
  Sender: FDA-Public Use
  Company Number: US-GLAXOSMITHKLINE-A0982470A

PATIENT
  Age: 79 Year
  Sex: Female

DRUGS (6)
  1. LOVAZA [Suspect]
     Indication: BLOOD CHOLESTEROL
     Dosage: 2CAP PER DAY
     Route: 048
     Dates: start: 2010
  2. TEKTURNA [Concomitant]
  3. METOPROLOL [Concomitant]
  4. PLAVIX [Concomitant]
  5. VITAMINS [Concomitant]
  6. ASPIRIN [Concomitant]

REACTIONS (4)
  - Skin disorder [Not Recovered/Not Resolved]
  - Dermatitis [Unknown]
  - Laceration [Unknown]
  - Skin haemorrhage [Unknown]
